FAERS Safety Report 11248582 (Version 1)
Quarter: 2015Q3

REPORT INFORMATION
  Report Type: Spontaneous
  Country: IT (occurrence: IT)
  Receive Date: 20150708
  Receipt Date: 20150708
  Transmission Date: 20151125
  Serious: Yes (Death)
  Sender: FDA-Public Use
  Company Number: IT-SA-2015SA096076

PATIENT
  Age: 114 Month
  Sex: Female

DRUGS (5)
  1. URSODEOXYCHOLIC ACID [Concomitant]
     Active Substance: URSODIOL
  2. ISONIAZIDE [Concomitant]
     Active Substance: ISONIAZID
  3. OMEPRAZOLE. [Concomitant]
     Active Substance: OMEPRAZOLE
  4. LEVOTHYROXINE. [Concomitant]
     Active Substance: LEVOTHYROXINE
  5. CEREZYME [Suspect]
     Active Substance: IMIGLUCERASE
     Indication: GAUCHER^S DISEASE TYPE II
     Dosage: DOSE:400 UNIT(S)
     Route: 041
     Dates: start: 20130823, end: 20140514

REACTIONS (1)
  - Death [Fatal]

NARRATIVE: CASE EVENT DATE: 20140523
